FAERS Safety Report 9851363 (Version 2)
Quarter: 2014Q2

REPORT INFORMATION
  Report Type: Spontaneous
  Country: FR (occurrence: FR)
  Receive Date: 20140129
  Receipt Date: 20140510
  Transmission Date: 20141212
  Serious: Yes (Hospitalization)
  Sender: FDA-Public Use
  Company Number: FR-ROCHE-1339098

PATIENT
  Age: 56 Year
  Sex: Female

DRUGS (7)
  1. ROCEPHINE [Suspect]
     Indication: PYELONEPHRITIS
     Route: 042
     Dates: start: 20131228
  2. XEPLION [Concomitant]
     Route: 030
  3. DEPAKOTE [Concomitant]
     Route: 048
  4. SULFARLEM [Concomitant]
     Route: 048
  5. LEPTICUR [Concomitant]
     Route: 048
  6. BACLOFENE [Concomitant]
     Dosage: 10 MG AT 2 DOSES IN THE MORNING AND HALF DOSE IN THE EVENING
     Route: 048
  7. XANAX [Concomitant]
     Dosage: 0.25 MG AT HALF DOSE IN THE MORNING, HALF DOSE AT LUNCH TIME AND 1 DOSE IN THE EVENING
     Route: 048

REACTIONS (1)
  - Acute generalised exanthematous pustulosis [Recovering/Resolving]
